FAERS Safety Report 4568050-2 (Version None)
Quarter: 2005Q1

REPORT INFORMATION
  Report Type: 
  Country: None (occurrence: None)
  Receive Date: 20050131
  Receipt Date: 20050117
  Transmission Date: 20050727
  Serious: Yes (Hospitalization)
  Sender: FDA-Public Use
  Company Number: 2004032756

PATIENT
  Age: 62 Year
  Sex: Male
  Weight: 68 kg

DRUGS (8)
  1. FELDENE [Suspect]
     Indication: ILL-DEFINED DISORDER
     Dosage: 20 MG (20 MG, 1 IN 1 WK), INTRAMUSCULAR
     Route: 030
     Dates: start: 20040207, end: 20040228
  2. PERCUTALGINE (DEXAMETHASONE ACETATE, GLYCOL SALICYLATE, METHYL NICOTIN [Suspect]
     Indication: ILL-DEFINED DISORDER
     Dates: start: 20030215, end: 20031216
  3. SYNTHOL (CHLORAL HYDRATE, MENTHOL, RESORCINOL, SALICYLIC ACID, VERATRO [Suspect]
     Indication: ILL-DEFINED DISORDER
     Dates: start: 20031226, end: 20031229
  4. SERETIDE MITE (FLUTICASONE PROPIONATE, SALMETEROL XINAFOATE) [Suspect]
     Indication: ILL-DEFINED DISORDER
     Dates: start: 20040301
  5. LERCANIDIPINE [Suspect]
     Indication: ILL-DEFINED DISORDER
     Dosage: ORAL
     Route: 048
     Dates: start: 20030301
  6. KETOPROFEN [Suspect]
     Indication: ILL-DEFINED DISORDER
     Dates: start: 20031220, end: 20031225
  7. PROCAINE (PROCAINE) [Concomitant]
  8. ALGIPAN (GLYCOL, SALICYLATE, HISTAMINE HYDROCHLORIDE, METHYL NICOTINAT [Concomitant]

REACTIONS (5)
  - ALLERGY TEST POSITIVE [None]
  - ECZEMA [None]
  - EOSINOPHIL COUNT INCREASED [None]
  - PHOTOSENSITIVITY REACTION [None]
  - WHITE BLOOD CELL COUNT INCREASED [None]
